FAERS Safety Report 13609501 (Version 1)
Quarter: 2017Q2

REPORT INFORMATION
  Report Type: Spontaneous
  Country: US (occurrence: US)
  Receive Date: 20170602
  Receipt Date: 20170602
  Transmission Date: 20170830
  Serious: Yes (Other)
  Sender: FDA-Public Use
  Company Number: US-BRISTOL-MYERS SQUIBB COMPANY-BMS-2017-047482

PATIENT
  Sex: Female
  Weight: 60.7 kg

DRUGS (3)
  1. KENALOG [Suspect]
     Active Substance: TRIAMCINOLONE ACETONIDE
     Indication: PIRIFORMIS SYNDROME
     Dosage: 1 DF, UNK
     Route: 030
     Dates: start: 201611
  2. KENALOG [Suspect]
     Active Substance: TRIAMCINOLONE ACETONIDE
     Indication: BURSITIS
     Route: 065
  3. PROGESTERONE ABBOTT [Concomitant]
     Indication: PRODUCT USED FOR UNKNOWN INDICATION
     Dosage: UNK
     Route: 065

REACTIONS (3)
  - Cartilage injury [Unknown]
  - Alopecia [Unknown]
  - Arthralgia [Unknown]
